FAERS Safety Report 6882382-4 (Version None)
Quarter: 2010Q3

REPORT INFORMATION
  Report Type: 
  Country: None (occurrence: None)
  Receive Date: 20100729
  Receipt Date: 20100721
  Transmission Date: 20110219
  Serious: Yes (Other)
  Sender: FDA-Public Use
  Company Number: US-BRISTOL-MYERS SQUIBB COMPANY-15203979

PATIENT
  Age: 52 Year
  Sex: Male
  Weight: 96 kg

DRUGS (11)
  1. CARBOPLATIN [Suspect]
     Indication: NEOPLASM MALIGNANT
     Dosage: INJECTION
  2. ETOPOSIDE [Suspect]
     Indication: NEOPLASM MALIGNANT
  3. SUTENT [Suspect]
     Indication: METASTATIC RENAL CELL CARCINOMA
     Route: 048
     Dates: start: 20100301
  4. KLOR-CON [Concomitant]
     Indication: MINERAL SUPPLEMENTATION
     Dosage: 20 MEQ TABLETS
  5. CLONAZEPAM [Concomitant]
     Indication: NERVOUSNESS
  6. SANDOSTATIN [Concomitant]
     Indication: CARCINOID SYNDROME
     Dosage: INJECTION SINCE LAST FIVE YEARS
  7. LEVOTHYROXINE SODIUM [Concomitant]
     Indication: HYPOTHYROIDISM
  8. PROCHLORPERAZINE [Concomitant]
     Dosage: EVERY FOUR HOURS AS NEEDED.
  9. LASIX [Concomitant]
     Dosage: INCREASED TO 40MG ON AN UNKNOWN DATE
  10. LACTULOSE [Concomitant]
  11. BENICAR [Concomitant]

REACTIONS (11)
  - DEPRESSED LEVEL OF CONSCIOUSNESS [None]
  - DIARRHOEA [None]
  - FLUID RETENTION [None]
  - FLUSHING [None]
  - HYPERBILIRUBINAEMIA [None]
  - JOINT SWELLING [None]
  - MALIGNANT NEOPLASM PROGRESSION [None]
  - PLATELET COUNT ABNORMAL [None]
  - SERUM SEROTONIN INCREASED [None]
  - SWELLING FACE [None]
  - WHITE BLOOD CELL COUNT DECREASED [None]
